FAERS Safety Report 8399608-0 (Version None)
Quarter: 2012Q2

REPORT INFORMATION
  Report Type: 
  Country: None (occurrence: None)
  Receive Date: 20120531
  Receipt Date: 20120516
  Transmission Date: 20120825
  Serious: Yes (Other)
  Sender: FDA-Public Use
  Company Number: IL-WATSON-2012-08610

PATIENT
  Age: 30 Year
  Sex: Male

DRUGS (7)
  1. PREDNISONE TAB [Suspect]
     Indication: HODGKIN'S DISEASE
     Dosage: UNK
     Route: 065
  2. CYCLOPHOSPHAMIDE [Suspect]
     Indication: HODGKIN'S DISEASE
     Dosage: 650 OR 1250 MG/M2, EVERY 14 DAYS
     Route: 065
  3. BLEOMYCIN SULFATE [Suspect]
     Indication: HODGKIN'S DISEASE
     Dosage: 10 MG/M2, EVERY 14 DAYS
     Route: 065
  4. VINCRISTINE [Suspect]
     Indication: HODGKIN'S DISEASE
     Dosage: 1.4 MG/M2, EVERY 14 DAYS
     Route: 065
  5. PROCARBAZINE HYDROCHLORIDE [Suspect]
     Indication: HODGKIN'S DISEASE
     Dosage: 700 MG/M2, EVERY 14 DAYS
     Route: 065
  6. ETOPOSIDE [Suspect]
     Indication: HODGKIN'S DISEASE
     Dosage: 300 OR 600 MG/M2, EVERY 14 DAYS
     Route: 065
  7. DOXORUBICIN HCL [Suspect]
     Indication: HODGKIN'S DISEASE
     Dosage: 25 OR 35 MG/M2, EVERY 14 DAYS
     Route: 065

REACTIONS (1)
  - PULMONARY FUNCTION TEST ABNORMAL [None]
